FAERS Safety Report 19195639 (Version 1)
Quarter: 2021Q2

REPORT INFORMATION
  Report Type: Other
  Country: RS (occurrence: RS)
  Receive Date: 20210429
  Receipt Date: 20210429
  Transmission Date: 20210717
  Serious: Yes (Other)
  Sender: FDA-Public Use
  Company Number: RS-APRECIA PHARMACEUTICALS-APRE20210635

PATIENT
  Age: 11 Year
  Sex: Female

DRUGS (1)
  1. LEVETIRACETAM. [Suspect]
     Active Substance: LEVETIRACETAM
     Indication: STATUS EPILEPTICUS
     Dosage: 30 MG/KG
     Route: 042

REACTIONS (5)
  - Product use in unapproved indication [Unknown]
  - Sinus bradycardia [Recovered/Resolved]
  - Myoclonus [Recovered/Resolved]
  - Partial seizures [Recovered/Resolved]
  - Bradycardia [Recovered/Resolved]
